FAERS Safety Report 4620344-8 (Version None)
Quarter: 2005Q1

REPORT INFORMATION
  Report Type: 
  Country: None (occurrence: None)
  Receive Date: 20050324
  Receipt Date: 20050315
  Transmission Date: 20050727
  Serious: Yes (Death, Hospitalization)
  Sender: FDA-Public Use
  Company Number: HQWYE560624FEB05

PATIENT
  Age: 70 Year
  Sex: Female
  Weight: 90.8 kg

DRUGS (6)
  1. MYLOTARG [Suspect]
     Indication: ACUTE MYELOID LEUKAEMIA RECURRENT
     Dosage: 18 MG 1 X PER 1 DAY, INTRAVENOUS
     Route: 042
     Dates: start: 20050203, end: 20050203
  2. MYLOTARG [Suspect]
     Indication: ACUTE MYELOID LEUKAEMIA RECURRENT
     Dosage: 18 MG 1 X PER 1 DAY, INTRAVENOUS
     Route: 042
     Dates: start: 20050217, end: 20050217
  3. ZANTAC [Concomitant]
  4. ACYCLOVIR [Concomitant]
  5. LEVOTHYROXINE SODIUM [Concomitant]
  6. DIFLUCAN [Concomitant]

REACTIONS (8)
  - COAGULOPATHY [None]
  - CORYNEBACTERIUM INFECTION [None]
  - CULTURE URINE POSITIVE [None]
  - HYPOGLYCAEMIA [None]
  - PANCYTOPENIA [None]
  - RENAL FAILURE ACUTE [None]
  - SEPSIS [None]
  - VENOOCCLUSIVE LIVER DISEASE [None]
